FAERS Safety Report 6958797-2 (Version None)
Quarter: 2010Q3

REPORT INFORMATION
  Report Type: 
  Country: None (occurrence: None)
  Receive Date: 20100831
  Receipt Date: 20100823
  Transmission Date: 20110219
  Serious: Yes (Other)
  Sender: FDA-Public Use
  Company Number: PHHY2010FI55516

PATIENT
  Sex: Male

DRUGS (1)
  1. LEPONEX [Suspect]
     Dosage: UNK

REACTIONS (6)
  - AUTOIMMUNE DISORDER [None]
  - C-REACTIVE PROTEIN INCREASED [None]
  - INFECTION [None]
  - LEUKOCYTOSIS [None]
  - PNEUMONIA [None]
  - PYREXIA [None]
